FAERS Safety Report 21511882 (Version 4)
Quarter: 2023Q2

REPORT INFORMATION
  Report Type: Report from Study
  Country: US (occurrence: US)
  Receive Date: 20221027
  Receipt Date: 20230404
  Transmission Date: 20230722
  Serious: Yes (Hospitalization, Other)
  Sender: FDA-Public Use
  Company Number: US-ABBVIE-4175943

PATIENT
  Age: 74 Year
  Sex: Female
  Weight: 48.987 kg

DRUGS (1)
  1. CREON [Suspect]
     Active Substance: PANCRELIPASE AMYLASE\PANCRELIPASE LIPASE\PANCRELIPASE PROTEASE
     Indication: Product used for unknown indication
     Dosage: TIME INTERVAL: 0.33333333 DAYS: STRENGTH: 36000 UNIT
     Route: 048

REACTIONS (7)
  - Hospitalisation [Recovered/Resolved]
  - Procedural pneumothorax [Unknown]
  - Dyspepsia [Unknown]
  - Gastrooesophageal reflux disease [Recovering/Resolving]
  - Pulmonary mass [Unknown]
  - Pneumothorax [Unknown]
  - Cachexia [Unknown]

NARRATIVE: CASE EVENT DATE: 20220701
